FAERS Safety Report 8676257 (Version 3)
Quarter: 2013Q2

REPORT INFORMATION
  Report Type: Spontaneous
  Country: US (occurrence: US)
  Receive Date: 20120720
  Receipt Date: 20130611
  Transmission Date: 20140414
  Serious: No
  Sender: FDA-Public Use
  Company Number: US-ASTRAZENECA-2011SE62059

PATIENT
  Age: 58 Year
  Sex: Female

DRUGS (3)
  1. TOPROL XL [Suspect]
     Route: 048
  2. TOPROL XL [Suspect]
     Dosage: TWO PILLS IN THE MORNING AND TWO PILLS AT NIGHT
     Route: 048
  3. SYMBICORT PMDI [Suspect]
     Dosage: ADDITIONAL PUFF OF SYMBICORT, UNKNOWN
     Route: 055

REACTIONS (5)
  - Stress [Unknown]
  - Memory impairment [Unknown]
  - Dyspnoea [Unknown]
  - Headache [Unknown]
  - Intentional drug misuse [Unknown]
